FAERS Safety Report 6595496-3 (Version None)
Quarter: 2010Q1

REPORT INFORMATION
  Report Type: 
  Country: None (occurrence: None)
  Receive Date: 20100223
  Receipt Date: 20100209
  Transmission Date: 20100710
  Serious: No
  Sender: FDA-Public Use
  Company Number: US-JNJFOC-20100205396

PATIENT
  Sex: Female
  Weight: 87.54 kg

DRUGS (5)
  1. DURAGESIC-100 [Suspect]
     Indication: BACK DISORDER
     Route: 062
  2. DURAGESIC-100 [Suspect]
     Indication: NEUROGENIC BLADDER
     Route: 062
  3. DURAGESIC-100 [Suspect]
     Route: 062
  4. DURAGESIC-100 [Suspect]
     Route: 062
  5. SENOKOT [Concomitant]
     Indication: GASTROINTESTINAL DISORDER
     Route: 048

REACTIONS (7)
  - AGITATION [None]
  - EUPHORIC MOOD [None]
  - FEELING ABNORMAL [None]
  - PAIN [None]
  - PRODUCT QUALITY ISSUE [None]
  - WITHDRAWAL SYNDROME [None]
  - WRONG TECHNIQUE IN DRUG USAGE PROCESS [None]
